FAERS Safety Report 10408609 (Version 2)
Quarter: 2014Q3

REPORT INFORMATION
  Report Type: Spontaneous
  Country: US (occurrence: US)
  Receive Date: 20140826
  Receipt Date: 20140912
  Transmission Date: 20150326
  Serious: Yes (Other)
  Sender: FDA-Public Use
  Company Number: US-009507513-1408USA010465

PATIENT
  Age: 74 Year
  Sex: Female
  Weight: 129 kg

DRUGS (3)
  1. PROAIR HFA [Concomitant]
     Active Substance: ALBUTEROL SULFATE
  2. ASMANEX [Concomitant]
     Active Substance: MOMETASONE FUROATE
  3. DULERA [Suspect]
     Active Substance: FORMOTEROL FUMARATE DIHYDRATE\MOMETASONE FUROATE
     Indication: ASTHMA
     Dosage: 2 PUFFS, TWICE A DAY
     Route: 055
     Dates: start: 2014, end: 20140818

REACTIONS (6)
  - Malaise [Not Recovered/Not Resolved]
  - Cough [Not Recovered/Not Resolved]
  - Aphonia [Not Recovered/Not Resolved]
  - Disability [Not Recovered/Not Resolved]
  - Blister [Not Recovered/Not Resolved]
  - Tongue disorder [Unknown]

NARRATIVE: CASE EVENT DATE: 20140804
